FAERS Safety Report 8802888 (Version 2)
Quarter: 2012Q4

REPORT INFORMATION
  Report Type: Report from Study
  Country: US (occurrence: US)
  Receive Date: 20120924
  Receipt Date: 20121017
  Transmission Date: 20130627
  Serious: Yes (Other)
  Sender: FDA-Public Use
  Company Number: US-VERTEX PHARMACEUTICAL INC.-2012-021460

PATIENT
  Age: 49 Year
  Sex: Female
  Weight: 77.55 kg

DRUGS (1)
  1. VX-950 [Suspect]
     Indication: HEPATITIS C
     Dosage: 750 mg, tid
     Route: 048
     Dates: start: 20120121, end: 20120421

REACTIONS (3)
  - Transient ischaemic attack [Unknown]
  - Cystitis [Unknown]
  - Migraine [Unknown]
